FAERS Safety Report 6844959-1 (Version None)
Quarter: 2010Q3

REPORT INFORMATION
  Report Type: 
  Country: None (occurrence: None)
  Receive Date: 20100715
  Receipt Date: 20100706
  Transmission Date: 20110219
  Serious: No
  Sender: FDA-Public Use
  Company Number: US-ELI_LILLY_AND_COMPANY-US201007002754

PATIENT
  Age: 61 Year
  Sex: Female

DRUGS (1)
  1. ADCIRCA [Suspect]
     Indication: PULMONARY HYPERTENSION
     Dosage: 20 MG, DAILY (1/D)
     Dates: start: 20100614, end: 20100706

REACTIONS (1)
  - VISUAL IMPAIRMENT [None]
